FAERS Safety Report 5284061-6 (Version None)
Quarter: 2007Q1

REPORT INFORMATION
  Report Type: 
  Country: None (occurrence: None)
  Receive Date: 20070327
  Receipt Date: 20070315
  Transmission Date: 20070707
  Serious: Yes (Hospitalization)
  Sender: FDA-Public Use
  Company Number: 2007VX000873

PATIENT
  Age: 43 Year
  Sex: Male

DRUGS (6)
  1. INFERGEN [Suspect]
     Indication: HEPATITIS C
     Dosage: 15 UG; SC
     Route: 058
     Dates: start: 20061026, end: 20070210
  2. LEXAPRO [Concomitant]
  3. PROMETHAZINE [Concomitant]
  4. PANTOPRAZOLE [Concomitant]
  5. NADOLOL [Concomitant]
  6. COMPAZINE [Concomitant]

REACTIONS (4)
  - ABDOMINAL PAIN UPPER [None]
  - DRUG INEFFECTIVE [None]
  - OESOPHAGEAL VARICEAL LIGATION [None]
  - UPPER GASTROINTESTINAL HAEMORRHAGE [None]
